FAERS Safety Report 15285986 (Version 1)
Quarter: 2018Q3

REPORT INFORMATION
  Report Type: Spontaneous
  Country: US (occurrence: US)
  Receive Date: 20180816
  Receipt Date: 20180816
  Transmission Date: 20181010
  Serious: Yes (Other)
  Sender: FDA-Public Use
  Company Number: US-UCBSA-2018034985

PATIENT
  Sex: Female

DRUGS (1)
  1. CIMZIA [Suspect]
     Active Substance: CERTOLIZUMAB PEGOL
     Indication: PRODUCT USED FOR UNKNOWN INDICATION
     Dosage: UNKNOWN DOSE
     Route: 058
     Dates: start: 20180410

REACTIONS (3)
  - Arthritis [Recovering/Resolving]
  - Arthralgia [Not Recovered/Not Resolved]
  - Hand deformity [Unknown]

NARRATIVE: CASE EVENT DATE: 2018
